FAERS Safety Report 16973209 (Version 2)
Quarter: 2019Q4

REPORT INFORMATION
  Report Type: Spontaneous
  Country: US (occurrence: US)
  Receive Date: 20191030
  Receipt Date: 20191225
  Transmission Date: 20200122
  Serious: No
  Sender: FDA-Public Use
  Company Number: US-ASTRAZENECA-2019SF40256

PATIENT
  Sex: Female

DRUGS (1)
  1. SYMBICORT [Suspect]
     Active Substance: BUDESONIDE\FORMOTEROL FUMARATE DIHYDRATE
     Dosage: 160/4.5 MCG 120 INHALATIONS UNKNOWN
     Route: 055
     Dates: start: 20190930

REACTIONS (4)
  - Malaise [Unknown]
  - Drug ineffective [Unknown]
  - Device failure [Unknown]
  - Respiration abnormal [Unknown]
